FAERS Safety Report 23907168 (Version 2)
Quarter: 2024Q2

REPORT INFORMATION
  Report Type: Spontaneous
  Country: DE (occurrence: DE)
  Receive Date: 20240528
  Receipt Date: 20240604
  Transmission Date: 20240715
  Serious: Yes (Other)
  Sender: FDA-Public Use
  Company Number: DE-BoehringerIngelheim-2024-BI-030219

PATIENT
  Age: 74 Year
  Sex: Male

DRUGS (1)
  1. JARDIANCE [Suspect]
     Active Substance: EMPAGLIFLOZIN
     Indication: Product used for unknown indication
     Dosage: \ IN THE MORNING

REACTIONS (1)
  - Pharyngeal cancer [Unknown]
